FAERS Safety Report 20999107 (Version 1)
Quarter: 2022Q2

REPORT INFORMATION
  Report Type: Spontaneous
  Country: US (occurrence: None)
  Receive Date: 20220623
  Receipt Date: 20220623
  Transmission Date: 20220721
  Serious: No
  Sender: FDA-Public Use
  Company Number: None

PATIENT

DRUGS (3)
  1. VASOSTRICT [Suspect]
     Active Substance: VASOPRESSIN
     Dosage: OTHER STRENGTH : 20 UNITS/100ML;?
  2. SODIUM CHLORIDE [Suspect]
     Active Substance: SODIUM CHLORIDE
  3. DEXMEDETOMIDINE [Suspect]
     Active Substance: DEXMEDETOMIDINE
     Dosage: OTHER STRENGTH : 400 MCG/100ML;?

REACTIONS (3)
  - Device computer issue [None]
  - Product label confusion [None]
  - Circumstance or information capable of leading to medication error [None]
